FAERS Safety Report 20987892 (Version 2)
Quarter: 2023Q2

REPORT INFORMATION
  Report Type: Spontaneous
  Country: US (occurrence: US)
  Receive Date: 20220621
  Receipt Date: 20230530
  Transmission Date: 20230722
  Serious: No
  Sender: FDA-Public Use
  Company Number: US-PFIZER INC-PV202200006072

PATIENT
  Age: 50 Year
  Sex: Female

DRUGS (1)
  1. LORBRENA [Suspect]
     Active Substance: LORLATINIB
     Indication: Metastases to central nervous system
     Dosage: 100 MG

REACTIONS (3)
  - Illness [Unknown]
  - Visual acuity reduced [Unknown]
  - Off label use [Unknown]
